FAERS Safety Report 20988860 (Version 2)
Quarter: 2022Q3

REPORT INFORMATION
  Report Type: Spontaneous
  Country: FR (occurrence: FR)
  Receive Date: 20220621
  Receipt Date: 20220623
  Transmission Date: 20221027
  Serious: Yes (Life-Threatening, Hospitalization, Other)
  Sender: FDA-Public Use
  Company Number: FR-NOVARTISPH-NVSC2022FR140165

PATIENT
  Age: 22 Year
  Sex: Female
  Weight: 50 kg

DRUGS (11)
  1. MEKINIST [Suspect]
     Active Substance: TRAMETINIB DIMETHYL SULFOXIDE
     Indication: Acute monocytic leukaemia
     Dosage: 2 MG, QD
     Route: 065
     Dates: start: 20211029
  2. MEKINIST [Suspect]
     Active Substance: TRAMETINIB DIMETHYL SULFOXIDE
     Dosage: 2 MG, QD
     Route: 048
     Dates: start: 20211109, end: 20211115
  3. MEKINIST [Suspect]
     Active Substance: TRAMETINIB DIMETHYL SULFOXIDE
     Dosage: UNK
     Route: 065
  4. CYTARABINE [Concomitant]
     Active Substance: CYTARABINE
     Indication: Product used for unknown indication
     Dosage: UNK
     Route: 065
     Dates: start: 20210916, end: 20210923
  5. CYTARABINE [Concomitant]
     Active Substance: CYTARABINE
     Dosage: UNK
     Route: 065
     Dates: start: 20210924
  6. METHOTREXATE [Concomitant]
     Active Substance: METHOTREXATE
     Indication: Product used for unknown indication
     Dosage: UNK- (INJECTION)
     Route: 065
     Dates: start: 20210921
  7. DEXAMETHASONE [Concomitant]
     Active Substance: DEXAMETHASONE
     Indication: Product used for unknown indication
     Dosage: UNK
     Route: 065
     Dates: start: 20211001
  8. AZACITIDINE [Concomitant]
     Active Substance: AZACITIDINE
     Indication: Acute monocytic leukaemia
     Dosage: 75 MG/M2 (DAY 1 TO DAY 7)
     Route: 065
     Dates: start: 20211029
  9. AZACITIDINE [Concomitant]
     Active Substance: AZACITIDINE
     Dosage: (25MG/ML) (POWDER FOR INJECTABLE SUSPENSION)
     Route: 065
     Dates: start: 20211109
  10. DOBUTAMINE [Concomitant]
     Active Substance: DOBUTAMINE HYDROCHLORIDE
     Indication: Product used for unknown indication
     Dosage: 10 ?G/KG/MIN
     Route: 065
     Dates: start: 20211115
  11. LEVOSIMENDAN [Concomitant]
     Active Substance: LEVOSIMENDAN
     Indication: Product used for unknown indication
     Dosage: UNK
     Route: 065
     Dates: start: 20211129

REACTIONS (21)
  - Cardiogenic shock [Not Recovered/Not Resolved]
  - Congestive cardiomyopathy [Not Recovered/Not Resolved]
  - Cardiac failure [Not Recovered/Not Resolved]
  - Hypotension [Unknown]
  - Ventricular hypokinesia [Unknown]
  - Ventricular dysfunction [Unknown]
  - Sinus tachycardia [Unknown]
  - Ejection fraction decreased [Unknown]
  - Pericardial effusion [Unknown]
  - Hepatic cytolysis [Unknown]
  - Device occlusion [Unknown]
  - Acute pulmonary oedema [Unknown]
  - Dyspnoea [Unknown]
  - Ileus [Unknown]
  - Vomiting [Unknown]
  - Abdominal pain [Unknown]
  - Hypervolaemia [Unknown]
  - Nausea [Unknown]
  - Anxiety [Unknown]
  - Metabolic acidosis [Unknown]
  - Product use in unapproved indication [Unknown]

NARRATIVE: CASE EVENT DATE: 20211030
